FAERS Safety Report 12181295 (Version 4)
Quarter: 2016Q2

REPORT INFORMATION
  Report Type: Spontaneous
  Country: US (occurrence: US)
  Receive Date: 20160315
  Receipt Date: 20160426
  Transmission Date: 20160815
  Serious: Yes (Hospitalization)
  Sender: FDA-Public Use
  Company Number: US-JNJFOC-20160307498

PATIENT
  Age: 51 Year
  Sex: Male

DRUGS (18)
  1. ZOLOFT [Concomitant]
     Active Substance: SERTRALINE HYDROCHLORIDE
     Indication: SCHIZOPHRENIA
     Route: 048
     Dates: start: 201511
  2. INVEGA SUSTENNA [Suspect]
     Active Substance: PALIPERIDONE PALMITATE
     Indication: SCHIZOPHRENIA
     Route: 030
     Dates: start: 201510
  3. HALDOL DECANOATE [Suspect]
     Active Substance: HALOPERIDOL DECANOATE
     Indication: SCHIZOPHRENIA
     Route: 030
     Dates: start: 201501
  4. TRILEPTAL [Concomitant]
     Active Substance: OXCARBAZEPINE
     Indication: SCHIZOAFFECTIVE DISORDER
     Route: 048
     Dates: start: 201511
  5. QUETIAPINE. [Concomitant]
     Active Substance: QUETIAPINE
     Indication: SCHIZOAFFECTIVE DISORDER
     Route: 065
     Dates: end: 201510
  6. HALDOL [Suspect]
     Active Substance: HALOPERIDOL
     Indication: PRODUCT USED FOR UNKNOWN INDICATION
     Route: 048
     Dates: start: 201510
  7. DEPAKOTE [Suspect]
     Active Substance: DIVALPROEX SODIUM
     Indication: SCHIZOPHRENIA
     Route: 065
     Dates: start: 201501, end: 201510
  8. ZOLOFT [Concomitant]
     Active Substance: SERTRALINE HYDROCHLORIDE
     Indication: SCHIZOAFFECTIVE DISORDER
     Route: 048
     Dates: start: 201511
  9. COGENTIN [Concomitant]
     Active Substance: BENZTROPINE MESYLATE
     Indication: SCHIZOPHRENIA
     Route: 065
  10. HALDOL [Suspect]
     Active Substance: HALOPERIDOL
     Indication: PRODUCT USED FOR UNKNOWN INDICATION
     Route: 048
     Dates: start: 201511
  11. RISPERIDONE. [Suspect]
     Active Substance: RISPERIDONE
     Indication: SCHIZOPHRENIA
     Route: 048
     Dates: start: 201301, end: 201501
  12. HALDOL DECANOATE [Suspect]
     Active Substance: HALOPERIDOL DECANOATE
     Indication: SCHIZOAFFECTIVE DISORDER
     Route: 030
     Dates: start: 201501
  13. TRILEPTAL [Concomitant]
     Active Substance: OXCARBAZEPINE
     Indication: SCHIZOPHRENIA
     Route: 048
     Dates: start: 201511
  14. INVEGA SUSTENNA [Suspect]
     Active Substance: PALIPERIDONE PALMITATE
     Indication: SCHIZOAFFECTIVE DISORDER
     Route: 030
     Dates: start: 201510
  15. RISPERIDONE. [Suspect]
     Active Substance: RISPERIDONE
     Indication: SCHIZOAFFECTIVE DISORDER
     Route: 048
     Dates: start: 201301, end: 201501
  16. DEPAKOTE [Suspect]
     Active Substance: DIVALPROEX SODIUM
     Indication: SCHIZOAFFECTIVE DISORDER
     Route: 065
     Dates: start: 201501, end: 201510
  17. QUETIAPINE. [Concomitant]
     Active Substance: QUETIAPINE
     Indication: SCHIZOPHRENIA
     Route: 065
     Dates: end: 201510
  18. COGENTIN [Concomitant]
     Active Substance: BENZTROPINE MESYLATE
     Indication: SCHIZOAFFECTIVE DISORDER
     Route: 065

REACTIONS (5)
  - Urinary tract infection [Recovered/Resolved]
  - Aggression [Not Recovered/Not Resolved]
  - Refusal of treatment by patient [Not Recovered/Not Resolved]
  - Breast enlargement [Not Recovered/Not Resolved]
  - Psychotic behaviour [Not Recovered/Not Resolved]

NARRATIVE: CASE EVENT DATE: 201301
